FAERS Safety Report 9869013 (Version 3)
Quarter: 2014Q2

REPORT INFORMATION
  Report Type: Spontaneous
  Country: US (occurrence: US)
  Receive Date: 20140205
  Receipt Date: 20140530
  Transmission Date: 20141212
  Serious: No
  Sender: FDA-Public Use
  Company Number: US-009507513-1201USA00828

PATIENT
  Age: 27 Year
  Sex: Female

DRUGS (7)
  1. ISENTRESS [Suspect]
     Indication: HIV INFECTION
     Dosage: TOTAL DAILY DOSE 800 MG/DAY, COURSE 1
     Route: 048
     Dates: end: 20111213
  2. ISENTRESS [Suspect]
     Dosage: TOTAL DAILY DOSE 800 MG/DAY, COURSE 2
     Route: 048
     Dates: start: 20111216
  3. TRUVADA [Suspect]
     Dosage: TOTAL DAILY DOSE 1 TAB/CAPS, COURSE 1
     Route: 048
  4. INTELENCE [Suspect]
     Dosage: TOTAL DAILY DOSE 200 MG/DAY, COURSE 1
     Route: 048
  5. NEUPOGEN [Concomitant]
     Dosage: 300 MCG/ML, BIW
  6. CYANOCOBALAMIN [Concomitant]
     Dosage: ONCE WEEKLY INJECTIONS
  7. IRON (UNSPECIFIED) [Concomitant]
     Indication: ROUTINE HEALTH MAINTENANCE
     Dosage: 150/25/1
     Route: 048

REACTIONS (1)
  - Exposure during pregnancy [Unknown]
